FAERS Safety Report 5907563-5 (Version None)
Quarter: 2008Q4

REPORT INFORMATION
  Report Type: 
  Country: None (occurrence: None)
  Receive Date: 20081002
  Receipt Date: 20081002
  Transmission Date: 20090506
  Serious: Yes (Other)
  Sender: FDA-Public Use
  Company Number: None

PATIENT
  Sex: Female
  Weight: 72.5755 kg

DRUGS (1)
  1. METOPROLOL SUCCINATE [Suspect]
     Indication: AORTIC DILATATION
     Dosage: 12.5 ONCE A DAY PO
     Route: 048
     Dates: start: 20080901, end: 20081001

REACTIONS (3)
  - MIDDLE INSOMNIA [None]
  - NIGHTMARE [None]
  - PARTIAL SEIZURES [None]
